FAERS Safety Report 19616835 (Version 1)
Quarter: 2021Q3

REPORT INFORMATION
  Report Type: Spontaneous
  Country: US (occurrence: US)
  Receive Date: 20210727
  Receipt Date: 20210727
  Transmission Date: 20211014
  Serious: No
  Sender: FDA-Public Use
  Company Number: US-ABBVIE-20K-163-3552863-00

PATIENT
  Sex: Female

DRUGS (1)
  1. SYNTHROID [Suspect]
     Active Substance: LEVOTHYROXINE SODIUM
     Indication: PRODUCT USED FOR UNKNOWN INDICATION
     Route: 048

REACTIONS (12)
  - Headache [Unknown]
  - Throat tightness [Unknown]
  - Reaction to excipient [Unknown]
  - Drug intolerance [Unknown]
  - Food intolerance [Unknown]
  - Basedow^s disease [Unknown]
  - Fibromyalgia [Unknown]
  - Tooth disorder [Unknown]
  - Gastrooesophageal reflux disease [Unknown]
  - Hyperthyroidism [Unknown]
  - Sleep disorder [Unknown]
  - Dyspepsia [Unknown]
